FAERS Safety Report 5333406-7 (Version None)
Quarter: 2007Q1

REPORT INFORMATION
  Report Type: 
  Country: None (occurrence: None)
  Receive Date: 20070306
  Receipt Date: 20060206
  Transmission Date: 20070707
  Serious: Yes (Other)
  Sender: FDA-Public Use
  Company Number: A03200600735

PATIENT
  Sex: Female

DRUGS (2)
  1. PLAVIX [Suspect]
     Indication: CARDIAC DISORDER
     Dosage: 75 MG QD - ORAL
     Route: 048
     Dates: start: 20040101
  2. ACETYLSALICYLIC ACID SRT [Concomitant]

REACTIONS (3)
  - EYE HAEMORRHAGE [None]
  - EYE SWELLING [None]
  - VISION BLURRED [None]
